FAERS Safety Report 20812151 (Version 2)
Quarter: 2022Q2

REPORT INFORMATION
  Report Type: Other
  Country: US (occurrence: None)
  Receive Date: 20220511
  Receipt Date: 20220520
  Transmission Date: 20220721
  Serious: Yes (Other)
  Sender: FDA-Public Use
  Company Number: US-ROCHE-3087027

PATIENT
  Age: 51 Year
  Sex: Female
  Weight: 54.480 kg

DRUGS (2)
  1. OCREVUS [Suspect]
     Active Substance: OCRELIZUMAB
     Indication: Multiple sclerosis
     Dosage: YES; 600MG FOR EVERY 6 MONTHS, DATE OF PREVIOUS INFUSION: 09/SEP/2021,22/MAR/2022; 24/FEB/2020; 16/F
     Route: 042
     Dates: start: 2019
  2. OCREVUS [Suspect]
     Active Substance: OCRELIZUMAB
     Indication: Multiple sclerosis relapse
     Dosage: 300 MG INFUSION 2 WEEKS APART
     Route: 042

REACTIONS (9)
  - Memory impairment [Not Recovered/Not Resolved]
  - Multiple sclerosis pseudo relapse [Recovered/Resolved]
  - Benign breast neoplasm [Unknown]
  - Gait disturbance [Not Recovered/Not Resolved]
  - Vertigo [Recovered/Resolved]
  - Weight decreased [Not Recovered/Not Resolved]
  - Salmonellosis [Recovered/Resolved]
  - Cataract [Unknown]
  - Hernia [Unknown]

NARRATIVE: CASE EVENT DATE: 20211101
